FAERS Safety Report 6261826-5 (Version None)
Quarter: 2009Q3

REPORT INFORMATION
  Report Type: 
  Country: None (occurrence: None)
  Receive Date: 20090709
  Receipt Date: 20090629
  Transmission Date: 20100115
  Serious: Yes (Hospitalization)
  Sender: FDA-Public Use
  Company Number: CN-ROCHE-640800

PATIENT
  Age: 70 Year
  Sex: Female
  Weight: 35 kg

DRUGS (3)
  1. XELODA [Suspect]
     Indication: COLON CANCER
     Route: 048
     Dates: start: 20090511, end: 20090519
  2. XELODA [Suspect]
     Route: 048
     Dates: start: 20090601
  3. CHINESE MEDICINE NOS [Concomitant]
     Route: 048
     Dates: start: 20090601

REACTIONS (4)
  - ABDOMINAL ADHESIONS [None]
  - ARTHRALGIA [None]
  - SKIN DISCOLOURATION [None]
  - SKIN EXFOLIATION [None]
